FAERS Safety Report 8030272-6 (Version None)
Quarter: 2012Q1

REPORT INFORMATION
  Report Type: 
  Country: None (occurrence: None)
  Receive Date: 20120109
  Receipt Date: 20111228
  Transmission Date: 20120608
  Serious: Yes (Other)
  Sender: FDA-Public Use
  Company Number: PHFR2011IE02550

PATIENT
  Sex: Male

DRUGS (5)
  1. CLOZARIL [Suspect]
     Dosage: 550 MG, DAILY
     Route: 048
     Dates: start: 20101215, end: 20110412
  2. CLOZARIL [Suspect]
     Route: 048
     Dates: start: 20110531
  3. SOLIAN [Suspect]
     Indication: PSYCHOTIC DISORDER
     Dosage: 600 MG, DAILY
     Route: 048
     Dates: start: 20070101
  4. CLOZARIL [Suspect]
     Indication: SCHIZOPHRENIA, PARANOID TYPE
     Route: 048
     Dates: start: 20070101, end: 20100801
  5. CLONAZEPAM [Concomitant]
     Indication: AGITATION
     Dosage: 1 MG, DAILY
     Route: 048

REACTIONS (13)
  - LUNG INFECTION [None]
  - MALAISE [None]
  - SCHIZOPHRENIA [None]
  - DELUSION [None]
  - DIABETES MELLITUS [None]
  - NEUTROPHIL COUNT DECREASED [None]
  - VIRAL INFECTION [None]
  - PERICARDIAL EFFUSION [None]
  - NEUTROPENIA [None]
  - AGGRESSION [None]
  - AGITATION [None]
  - PERSECUTORY DELUSION [None]
  - WHITE BLOOD CELL COUNT DECREASED [None]
